FAERS Safety Report 19187830 (Version 1)
Quarter: 2021Q2

REPORT INFORMATION
  Report Type: Spontaneous
  Country: GB (occurrence: GB)
  Receive Date: 20210428
  Receipt Date: 20210428
  Transmission Date: 20210717
  Serious: Yes (Disabling)
  Sender: FDA-Public Use
  Company Number: GB-TEVA-2021-GB-1904513

PATIENT
  Sex: Female

DRUGS (1)
  1. CARVEDILOL. [Suspect]
     Active Substance: CARVEDILOL
     Dosage: 3.125MG
     Route: 065

REACTIONS (8)
  - Pruritus [Unknown]
  - Pyrexia [Unknown]
  - Blood pressure increased [Unknown]
  - Pain in extremity [Unknown]
  - Eczema [Unknown]
  - Abdominal discomfort [Unknown]
  - Fatigue [Unknown]
  - Drug hypersensitivity [Unknown]

NARRATIVE: CASE EVENT DATE: 20210402
